FAERS Safety Report 18246050 (Version 10)
Quarter: 2021Q4

REPORT INFORMATION
  Report Type: Spontaneous
  Country: US (occurrence: US)
  Receive Date: 20200909
  Receipt Date: 20211217
  Transmission Date: 20220303
  Serious: No
  Sender: FDA-Public Use
  Company Number: US-GLAXOSMITHKLINE-US2020AMR179771

PATIENT
  Sex: Female

DRUGS (10)
  1. ZEJULA [Suspect]
     Active Substance: NIRAPARIB
     Indication: Uterine cancer
     Dosage: 200 MG, QD
     Route: 065
     Dates: start: 20200812
  2. ZEJULA [Suspect]
     Active Substance: NIRAPARIB
     Dosage: 100 MG, QD
     Dates: start: 20200817
  3. ZEJULA [Suspect]
     Active Substance: NIRAPARIB
     Dosage: 100 MG, BID
     Route: 065
  4. ZEJULA [Suspect]
     Active Substance: NIRAPARIB
     Dosage: 200 MG, QD
     Route: 065
  5. ZEJULA [Suspect]
     Active Substance: NIRAPARIB
     Dosage: UNK (LOWERED DOSE)
     Route: 065
  6. ZEJULA [Suspect]
     Active Substance: NIRAPARIB
     Dosage: 100 MG, QD
  7. ZEJULA [Suspect]
     Active Substance: NIRAPARIB
     Dosage: 100 MG, QD
     Route: 048
     Dates: start: 20201108
  8. ZEJULA [Suspect]
     Active Substance: NIRAPARIB
     Dosage: 100 MG, QD
     Route: 048
     Dates: start: 20201108
  9. ZEJULA [Suspect]
     Active Substance: NIRAPARIB
     Dosage: 100 MG, QD
  10. ZEJULA [Suspect]
     Active Substance: NIRAPARIB
     Dosage: 100 MG, QD

REACTIONS (12)
  - Nausea [Not Recovered/Not Resolved]
  - Laboratory test abnormal [Recovered/Resolved]
  - Hypertension [Unknown]
  - Platelet count decreased [Recovering/Resolving]
  - Dry mouth [Unknown]
  - Vomiting [Unknown]
  - Abdominal discomfort [Unknown]
  - Dyspepsia [Unknown]
  - Feeding disorder [Unknown]
  - Off label use [Unknown]
  - Product dose omission issue [Unknown]
  - Product use in unapproved indication [Unknown]
